FAERS Safety Report 7816291-0 (Version None)
Quarter: 2011Q4

REPORT INFORMATION
  Report Type: 
  Country: None (occurrence: None)
  Receive Date: 20111016
  Receipt Date: 20111003
  Transmission Date: 20120403
  Serious: Yes (Hospitalization)
  Sender: FDA-Public Use
  Company Number: US-MYLANLABS-2011S1020796

PATIENT
  Age: 58 Year
  Sex: Male

DRUGS (19)
  1. MIDAZOLAM HCL [Concomitant]
     Route: 065
  2. SUCCINYLCHOLINE CHLORIDE [Concomitant]
     Indication: INDUCTION OF ANAESTHESIA
     Route: 065
  3. PROPOFOL [Concomitant]
     Indication: GENERAL ANAESTHESIA
     Route: 042
  4. RINGER LACTATE /01126301/ [Concomitant]
     Indication: INTRAOPERATIVE CARE
     Dosage: 2400ML DURING PROCEDURE
     Route: 065
  5. TOLTERODINE TARTRATE [Concomitant]
     Dosage: DAILY
     Route: 065
  6. OMEPRAZOLE [Concomitant]
     Dosage: DAILY
     Route: 065
  7. WARFARIN SODIUM [Concomitant]
     Dosage: DAILY
     Route: 065
  8. KETAMINE HCL [Interacting]
     Indication: GENERAL ANAESTHESIA
     Dosage: 100MG DURING PROCEDURE
     Route: 042
  9. LISINOPRIL [Concomitant]
     Dosage: DAILY
     Route: 065
  10. ZOLPIDEM [Concomitant]
     Dosage: DAILY
     Route: 065
  11. METFORMIN HYDROCHLORIDE [Concomitant]
     Dosage: DAILY
     Route: 065
  12. FORMOTEROL FUMARATE [Concomitant]
     Dosage: DAILY
     Route: 065
  13. FERROUS SULFATE TAB [Concomitant]
     Dosage: DAILY
     Route: 065
  14. GABAPENTIN [Suspect]
     Indication: PAIN
     Route: 065
  15. BUDESONIDE [Concomitant]
     Dosage: DAILY
     Route: 065
  16. ALBUTEROL [Concomitant]
     Dosage: DAILY
     Route: 065
  17. HYDROCHLOROTHIAZIDE [Concomitant]
     Dosage: DAILY
     Route: 065
  18. FENTANYL [Concomitant]
     Indication: GENERAL ANAESTHESIA
     Route: 042
  19. SENNA [Concomitant]
     Dosage: DAILY
     Route: 065

REACTIONS (6)
  - UNRESPONSIVE TO STIMULI [None]
  - DRUG INTERACTION [None]
  - PARALYSIS [None]
  - AREFLEXIA [None]
  - EXCESSIVE EYE BLINKING [None]
  - DEPRESSED LEVEL OF CONSCIOUSNESS [None]
